FAERS Safety Report 14243454 (Version 2)
Quarter: 2017Q4

REPORT INFORMATION
  Report Type: Spontaneous
  Country: CA (occurrence: CA)
  Receive Date: 20171201
  Receipt Date: 20171207
  Transmission Date: 20180321
  Serious: Yes (Hospitalization)
  Sender: FDA-Public Use
  Company Number: CA-HIKMA PHARMACEUTICALS CO. LTD-2017CA010306

PATIENT

DRUGS (5)
  1. TYLENOL WITH CODEINE [Concomitant]
     Active Substance: ACETAMINOPHEN\CODEINE PHOSPHATE
     Dosage: UNK, TID
     Route: 048
  2. BENADRYL [Concomitant]
     Active Substance: DIPHENHYDRAMINE HYDROCHLORIDE
     Dosage: 50 MG, UNK
     Route: 042
  3. INFLECTRA [Suspect]
     Active Substance: INFLIXIMAB-DYYB
     Indication: ANKYLOSING SPONDYLITIS
     Dosage: 400 MG, CYCLIC Q 0, 2, 6 WEEKS, THEN EVERY 8 WEEKS
     Route: 042
     Dates: start: 20161104
  4. METHOTREXATE. [Concomitant]
     Active Substance: METHOTREXATE
     Dosage: 20 MG, 1/WEEK
     Dates: start: 20160601
  5. IBUPROFEN. [Concomitant]
     Active Substance: IBUPROFEN
     Dosage: 600 MG, BID
     Route: 048

REACTIONS (21)
  - Ear discomfort [Unknown]
  - Hypoaesthesia [Unknown]
  - Erythema [Unknown]
  - Condition aggravated [Unknown]
  - Chest discomfort [Recovered/Resolved]
  - Consciousness fluctuating [Recovering/Resolving]
  - Swelling face [Unknown]
  - Pruritus generalised [Unknown]
  - Panic reaction [Unknown]
  - Blood pressure decreased [Unknown]
  - Urticaria [Unknown]
  - Nausea [Unknown]
  - Pain [Recovered/Resolved]
  - Tremor [Unknown]
  - Presyncope [Unknown]
  - Paraesthesia [Unknown]
  - Oedema peripheral [Unknown]
  - Cough [Recovered/Resolved]
  - Shock [Unknown]
  - Body temperature increased [Unknown]
  - Drug effect decreased [Unknown]

NARRATIVE: CASE EVENT DATE: 20170811
